FAERS Safety Report 20754579 (Version 1)
Quarter: 2022Q2

REPORT INFORMATION
  Report Type: Spontaneous
  Country: US (occurrence: None)
  Receive Date: 20220426
  Receipt Date: 20220426
  Transmission Date: 20220720
  Serious: No
  Sender: FDA-Public Use
  Company Number: US-ROCHE-2896201

PATIENT
  Sex: Male

DRUGS (1)
  1. ESBRIET [Suspect]
     Active Substance: PIRFENIDONE
     Indication: Pulmonary fibrosis
     Dosage: TAKES 3 CAPSULES (801 MG) IN THE MORNING AND NIGHT, USUALLY MISSES LUNCH TIME DOSES. ON 20/AUG/2021,
     Route: 048
     Dates: start: 20210528

REACTIONS (2)
  - Abdominal discomfort [Unknown]
  - Off label use [Unknown]
